FAERS Safety Report 7391597-0 (Version None)
Quarter: 2011Q2

REPORT INFORMATION
  Report Type: 
  Country: None (occurrence: None)
  Receive Date: 20110404
  Receipt Date: 20110322
  Transmission Date: 20111010
  Serious: Yes (Disabling, Other)
  Sender: FDA-Public Use
  Company Number: PHHY2011US23754

PATIENT
  Sex: Male
  Weight: 72 kg

DRUGS (5)
  1. ASPIRIN [Concomitant]
     Dosage: 81 MG, DAILY
     Route: 048
     Dates: start: 20081027
  2. DIURETICS [Concomitant]
     Dosage: UNK
  3. NORVASC [Concomitant]
     Indication: HYPERTENSION
     Dosage: 10 MG, DAILY
     Route: 048
     Dates: start: 20080203
  4. BLOOD PRESSURE MEDICATION [Concomitant]
     Dosage: UNK
  5. DIOVAN [Suspect]
     Indication: HYPERTENSION
     Dosage: 160 MG, QD
     Dates: start: 20081027

REACTIONS (5)
  - CEREBRAL ISCHAEMIA [None]
  - CEREBRAL ATROPHY [None]
  - AMNESIA [None]
  - PARKINSON'S DISEASE [None]
  - FLAT AFFECT [None]
